FAERS Safety Report 19184078 (Version 1)
Quarter: 2021Q2

REPORT INFORMATION
  Report Type: Spontaneous
  Country: US (occurrence: US)
  Receive Date: 20210425
  Receipt Date: 20210425
  Transmission Date: 20210717
  Serious: No
  Sender: FDA-Public Use
  Company Number: None

PATIENT
  Age: 60 Year
  Sex: Female
  Weight: 62.1 kg

DRUGS (5)
  1. CALCIUM W/D3 [Concomitant]
  2. XIIDRA [Suspect]
     Active Substance: LIFITEGRAST
     Indication: DRY EYE
     Dosage: ?          QUANTITY:60 DROP(S);?
     Route: 047
     Dates: start: 20210421, end: 20210421
  3. XIIDRA [Suspect]
     Active Substance: LIFITEGRAST
     Indication: BLEPHARITIS
     Dosage: ?          QUANTITY:60 DROP(S);?
     Route: 047
     Dates: start: 20210421, end: 20210421
  4. DIAZEPAM. [Concomitant]
     Active Substance: DIAZEPAM
  5. VITAMIN C [Concomitant]
     Active Substance: ASCORBIC ACID

REACTIONS (6)
  - Headache [None]
  - Tinnitus [None]
  - Psychomotor hyperactivity [None]
  - Nervousness [None]
  - Adverse drug reaction [None]
  - Irritability [None]

NARRATIVE: CASE EVENT DATE: 20210421
